FAERS Safety Report 13120982 (Version 2)
Quarter: 2017Q3

REPORT INFORMATION
  Report Type: Spontaneous
  Country: US (occurrence: US)
  Receive Date: 20170117
  Receipt Date: 20170725
  Transmission Date: 20171127
  Serious: Yes (Hospitalization, Other)
  Sender: FDA-Public Use
  Company Number: US-ASTRAZENECA-2017SE03244

PATIENT
  Age: 545 Month
  Sex: Male
  Weight: 106.6 kg

DRUGS (9)
  1. FLEXERIL [Concomitant]
     Active Substance: CYCLOBENZAPRINE HYDROCHLORIDE
     Indication: COMPLEX REGIONAL PAIN SYNDROME
     Dosage: THREE TIMES A DAY
     Route: 065
     Dates: start: 200112
  2. BENADRYL [Concomitant]
     Active Substance: DIPHENHYDRAMINE HYDROCHLORIDE
     Indication: HYPERSENSITIVITY
     Route: 065
  3. VITAMINS NOS [Concomitant]
     Active Substance: VITAMINS
  4. HYDROCODONE [Concomitant]
     Active Substance: HYDROCODONE
     Indication: COMPLEX REGIONAL PAIN SYNDROME
     Dosage: 7.5/325 MG, WENT FROM 8 PILLS A DAY TO 12 PILLS DAILY
     Route: 065
     Dates: start: 200109
  5. OXYCONTIN [Concomitant]
     Active Substance: OXYCODONE HYDROCHLORIDE
     Indication: COMPLEX REGIONAL PAIN SYNDROME
     Route: 065
  6. INSULIN GLARGINE [Concomitant]
     Active Substance: INSULIN GLARGINE
     Indication: TYPE 2 DIABETES MELLITUS
  7. BYETTA [Suspect]
     Active Substance: EXENATIDE
     Indication: TYPE 2 DIABETES MELLITUS
     Dosage: 10 MCG TWICE DAILY, STARTED ABOUT SEVEN YEARS AGO.
     Route: 058
  8. ZANAFLEX [Concomitant]
     Active Substance: TIZANIDINE HYDROCHLORIDE
     Indication: COMPLEX REGIONAL PAIN SYNDROME
     Dosage: 10 MG AND 4 MG THREE TIMES DAILY
     Route: 065
     Dates: start: 200112
  9. INSULIN GLARGINE [Concomitant]
     Active Substance: INSULIN GLARGINE
     Indication: TYPE 2 DIABETES MELLITUS
     Dates: start: 20170601

REACTIONS (9)
  - Rib fracture [Recovering/Resolving]
  - Femur fracture [Recovering/Resolving]
  - Pelvic fracture [Recovering/Resolving]
  - Localised infection [Recovering/Resolving]
  - Thoracic vertebral fracture [Recovering/Resolving]
  - Circumstance or information capable of leading to medication error [Unknown]
  - Road traffic accident [Recovering/Resolving]
  - Cervical vertebral fracture [Recovering/Resolving]
  - Muscle injury [Unknown]

NARRATIVE: CASE EVENT DATE: 200112
